FAERS Safety Report 21690599 (Version 1)
Quarter: 2022Q4

REPORT INFORMATION
  Report Type: Report from Study
  Country: US (occurrence: US)
  Receive Date: 20221206
  Receipt Date: 20221206
  Transmission Date: 20230113
  Serious: No
  Sender: FDA-Public Use
  Company Number: US-ABBVIE-22K-163-4461266-00

PATIENT
  Sex: Female

DRUGS (27)
  1. RINVOQ [Suspect]
     Active Substance: UPADACITINIB
     Indication: Psoriatic arthropathy
     Dosage: START DATE 13 APR 2022
     Route: 048
  2. RINVOQ [Suspect]
     Active Substance: UPADACITINIB
     Indication: Psoriatic arthropathy
     Dosage: 15 MG
     Route: 048
  3. ATORVASTATIN CALCIUM [Concomitant]
     Active Substance: ATORVASTATIN CALCIUM
     Indication: Product used for unknown indication
     Dosage: 40 MG
     Route: 048
  4. PREMARIN [Concomitant]
     Active Substance: ESTROGENS, CONJUGATED
     Indication: Product used for unknown indication
     Dosage: VAGINAL CREAM
  5. VITAMIN D2 [Concomitant]
     Active Substance: ERGOCALCIFEROL
     Indication: Product used for unknown indication
     Dosage: 1250 MCG
  6. Cyclobenzaprine HCL (Cyclobenzaprine hydrochloride) [Concomitant]
     Indication: Product used for unknown indication
     Dosage: 10 MG
  7. Promethazine HCL (Promethazine hydrochloride) [Concomitant]
     Indication: Product used for unknown indication
     Dosage: 25 MG
  8. Methocarbamol (Methocarbamol) [Concomitant]
     Indication: Product used for unknown indication
     Dosage: 500 MG
  9. CLONAZEPAM [Concomitant]
     Active Substance: CLONAZEPAM
     Indication: Product used for unknown indication
     Dosage: 1 MG
  10. Trazodone HCL (Trazodone hydrochloride) [Concomitant]
     Indication: Product used for unknown indication
     Dosage: 50 MG
  11. Hydrocodone/acetaminophen (Hydrocodone bitartrate;Paracetamol) [Concomitant]
     Indication: Product used for unknown indication
  12. Ketorolac tromethamine (Ketorolac tromethamine) [Concomitant]
     Indication: Product used for unknown indication
     Dosage: 10 MG
  13. METHOTREXATE [Concomitant]
     Active Substance: METHOTREXATE
     Indication: Product used for unknown indication
  14. Emgality (Galcanezumab gnlm) [Concomitant]
     Indication: Product used for unknown indication
     Dosage: 120 MG/ML PEN INJECTOR
  15. VENLAFAXINE HCL [Concomitant]
     Active Substance: VENLAFAXINE HYDROCHLORIDE
     Indication: Product used for unknown indication
     Dosage: 100 MG
  16. VYVANSE [Concomitant]
     Active Substance: LISDEXAMFETAMINE DIMESYLATE
     Indication: Product used for unknown indication
     Dosage: 70 MG
  17. Sumatriptan succinate (Sumatriptan succinate) [Concomitant]
     Indication: Product used for unknown indication
  18. ESTRADIOL [Concomitant]
     Active Substance: ESTRADIOL
     Indication: Product used for unknown indication
  19. COSENTYX [Concomitant]
     Active Substance: SECUKINUMAB
     Indication: Product used for unknown indication
  20. TOPIRAMATE [Concomitant]
     Active Substance: TOPIRAMATE
     Indication: Product used for unknown indication
     Dosage: 50 MG
  21. Pantoprazole sodium (Pantoprazole sodium sesquihydrate) [Concomitant]
     Indication: Product used for unknown indication
     Dosage: 40 MG
  22. ALPRAZOLAM [Concomitant]
     Active Substance: ALPRAZOLAM
     Indication: Product used for unknown indication
     Dosage: 1 MG
  23. Liothyronine sodium (Liothyronine sodium) [Concomitant]
     Indication: Product used for unknown indication
     Dosage: 5 MCG
  24. VITAMIN B COMPLEX [Concomitant]
     Active Substance: CYANOCOBALAMIN\DEXPANTHENOL\NIACINAMIDE\PYRIDOXINE HYDROCHLORIDE\RIBOFLAVIN 5^-PHOSPHATE SODIUM\THIA
     Indication: Product used for unknown indication
  25. Synjardy (Empagliflozin;Metformin hydrochloride) [Concomitant]
     Indication: Product used for unknown indication
     Dosage: 12.5- 500MG
  26. Moderna COVID-19 vaccine (Elasomeran) [Concomitant]
     Indication: COVID-19 immunisation
     Route: 030
     Dates: start: 20210102, end: 20210102
  27. Moderna COVID-19 vaccine (Elasomeran) [Concomitant]
     Indication: COVID-19 immunisation
     Route: 030
     Dates: start: 20210202, end: 20210202

REACTIONS (8)
  - Pain in extremity [Unknown]
  - Anaemia [Unknown]
  - Limb discomfort [Unknown]
  - Joint stiffness [Unknown]
  - Fatigue [Unknown]
  - Liver function test increased [Unknown]
  - Blood cholesterol increased [Unknown]
  - Palpitations [Unknown]

NARRATIVE: CASE EVENT DATE: 20220101
